FAERS Safety Report 15767984 (Version 1)
Quarter: 2018Q4

REPORT INFORMATION
  Report Type: Spontaneous
  Country: GB (occurrence: GB)
  Receive Date: 20181227
  Receipt Date: 20181227
  Transmission Date: 20190205
  Serious: Yes (Hospitalization)
  Sender: FDA-Public Use
  Company Number: GB-MYLANLABS-2018M1096203

PATIENT
  Age: 75 Year
  Sex: Male
  Weight: 84 kg

DRUGS (10)
  1. AMITRIPTYLINE HYDROCHLORIDE. [Concomitant]
     Active Substance: AMITRIPTYLINE HYDROCHLORIDE
     Dosage: 2 DOSAGE FORM, QD (AT NIGHT TO HELP SLEEP)
     Dates: start: 20170724, end: 20180615
  2. SINEMET [Concomitant]
     Active Substance: CARBIDOPA\LEVODOPA
     Dosage: 2 DOSAGE FORM, QD (AT 9:30PM (BEFORE BED)
     Dates: start: 20160226
  3. CO-BENELDOPA [Concomitant]
     Active Substance: BENSERAZIDE HYDROCHLORIDE\LEVODOPA
     Dosage: 1 DOSAGE FORM, QD (AT 7:00AM)
     Dates: start: 20170731
  4. CASSIA SENNA [Concomitant]
     Active Substance: HERBALS\SENNOSIDES
     Indication: CONSTIPATION
     Dosage: 2 DOSAGE FORM, QD (AT NIGHT)
     Dates: start: 20180515
  5. CO-CARELDOPA [Concomitant]
     Active Substance: CARBIDOPA\LEVODOPA
     Dosage: 8 DOSAGE FORM, QD
     Dates: start: 20141114
  6. ROPINIROLE. [Suspect]
     Active Substance: ROPINIROLE
     Indication: PRODUCT USED FOR UNKNOWN INDICATION
     Dosage: UNK
     Route: 065
     Dates: start: 20180511
  7. IPINNIA XL [Concomitant]
     Dosage: 1 DOSAGE FORM, QD (IN THE MORNING)
     Dates: start: 20170120, end: 20180316
  8. CO-AMILOFRUSE [Concomitant]
     Active Substance: AMILORIDE\FUROSEMIDE
     Dosage: 1 DOSAGE FORM, QD (EACH MORNING)
     Dates: start: 20180305
  9. SPIROCO [Concomitant]
     Active Substance: ROPINIROLE HYDROCHLORIDE
     Dosage: 1 DOSAGE FORM, QD (IN THE MORNING)
     Dates: start: 20180316, end: 20180529
  10. DOCUSATE SODIUM. [Concomitant]
     Active Substance: DOCUSATE SODIUM
     Indication: CONSTIPATION
     Dosage: 4 DOSAGE FORM, QD
     Dates: start: 20180515

REACTIONS (1)
  - Acute psychosis [Recovered/Resolved]

NARRATIVE: CASE EVENT DATE: 20180519
